FAERS Safety Report 17410808 (Version 1)
Quarter: 2020Q1

REPORT INFORMATION
  Report Type: Spontaneous
  Country: US (occurrence: US)
  Receive Date: 20200212
  Receipt Date: 20200212
  Transmission Date: 20200409
  Serious: No
  Sender: FDA-Public Use
  Company Number: US-PFIZER INC-2019506108

PATIENT
  Age: 60 Year
  Sex: Female

DRUGS (1)
  1. NICOTROL [Suspect]
     Active Substance: NICOTINE
     Indication: NICOTINE DEPENDENCE
     Dosage: UNK(START 1 SPRAY EACH NOSTRIL 1-2X/H; MAX 10 SPRAYS OR 5MG/H; 80 SPRAYS OR 40 MG/DAY)

REACTIONS (2)
  - Nasal discomfort [Unknown]
  - Epistaxis [Unknown]
